FAERS Safety Report 5726390-5 (Version None)
Quarter: 2008Q2

REPORT INFORMATION
  Report Type: 
  Country: None (occurrence: None)
  Receive Date: 20080502
  Receipt Date: 20080421
  Transmission Date: 20081010
  Serious: Yes (Other)
  Sender: FDA-Public Use
  Company Number: DE-WYE-G01432108

PATIENT
  Sex: Female

DRUGS (1)
  1. CLIMOPAX [Suspect]
     Indication: HORMONE REPLACEMENT THERAPY
     Route: 048
     Dates: start: 19940101, end: 20070901

REACTIONS (1)
  - METASTATIC GASTRIC CANCER [None]
